FAERS Safety Report 17048670 (Version 2)
Quarter: 2019Q4

REPORT INFORMATION
  Report Type: Report from Study
  Country: KR (occurrence: KR)
  Receive Date: 20191119
  Receipt Date: 20191213
  Transmission Date: 20200122
  Serious: No
  Sender: FDA-Public Use
  Company Number: KR-JNJFOC-20191110620

PATIENT

DRUGS (1)
  1. USTEKINUMAB [Suspect]
     Active Substance: USTEKINUMAB
     Indication: PSORIASIS
     Route: 058

REACTIONS (8)
  - Retching [Unknown]
  - Drug ineffective [Unknown]
  - Influenza like illness [Unknown]
  - Hepatic enzyme increased [Unknown]
  - Headache [Unknown]
  - Tonsillitis [Unknown]
  - Folliculitis [Unknown]
  - Nasopharyngitis [Unknown]
